FAERS Safety Report 20423569 (Version 2)
Quarter: 2022Q1

REPORT INFORMATION
  Report Type: Report from Study
  Country: JP (occurrence: JP)
  Receive Date: 20220203
  Receipt Date: 20220215
  Transmission Date: 20220424
  Serious: Yes (Hospitalization)
  Sender: FDA-Public Use
  Company Number: JP-JNJFOC-20220152355

PATIENT
  Age: 29 Year
  Sex: Female
  Weight: 45.2 kg

DRUGS (14)
  1. GUSELKUMAB [Suspect]
     Active Substance: GUSELKUMAB
     Indication: Crohn^s disease
     Route: 042
     Dates: start: 20210216
  2. GUSELKUMAB [Suspect]
     Active Substance: GUSELKUMAB
  3. MESALAMINE [Concomitant]
     Active Substance: MESALAMINE
     Indication: Product used for unknown indication
     Dates: start: 200602
  4. BEPOTASTINE BESYLATE [Concomitant]
     Active Substance: BEPOTASTINE BESYLATE
     Indication: Dermatitis atopic
     Route: 048
     Dates: start: 2010
  5. MAGNESIUM OXIDE [Concomitant]
     Active Substance: MAGNESIUM OXIDE
     Indication: Product used for unknown indication
     Dates: start: 20210105
  6. FERONIA [Concomitant]
     Indication: Anaemia
     Route: 048
     Dates: start: 2010
  7. ZOLPIDEM TARTRATE [Concomitant]
     Active Substance: ZOLPIDEM TARTRATE
     Indication: Insomnia
     Route: 048
     Dates: start: 2015
  8. XYZAL [Concomitant]
     Active Substance: LEVOCETIRIZINE DIHYDROCHLORIDE
     Indication: Dermatitis atopic
     Route: 048
     Dates: start: 20180123
  9. ATARAX-P [HYDROXYZINE HYDROCHLORIDE] [Concomitant]
     Indication: Dermatitis atopic
     Route: 048
     Dates: start: 20180710
  10. RINDERON V [Concomitant]
     Active Substance: BETAMETHASONE VALERATE
     Indication: Dermatitis atopic
     Route: 061
     Dates: start: 20150205
  11. RABEPRAZOLE SODIUM [Concomitant]
     Active Substance: RABEPRAZOLE SODIUM
     Indication: Product used for unknown indication
     Route: 048
     Dates: start: 20210316
  12. PRIMPERAN [Concomitant]
     Active Substance: METOCLOPRAMIDE HYDROCHLORIDE
     Indication: Product used for unknown indication
     Route: 048
     Dates: start: 20210316
  13. HERBALS [Concomitant]
     Active Substance: HERBALS
     Indication: Product used for unknown indication
     Route: 048
     Dates: start: 20210720
  14. XYLOCAINE [Concomitant]
     Active Substance: LIDOCAINE HYDROCHLORIDE
     Indication: Product used for unknown indication
     Route: 061
     Dates: start: 20211223, end: 20211223

REACTIONS (1)
  - Ileal stenosis [Recovering/Resolving]

NARRATIVE: CASE EVENT DATE: 20211223
